FAERS Safety Report 5133379-6 (Version None)
Quarter: 2006Q4

REPORT INFORMATION
  Report Type: 
  Country: None (occurrence: None)
  Receive Date: 20061024
  Receipt Date: 20061013
  Transmission Date: 20070319
  Serious: Yes (Life-Threatening)
  Sender: FDA-Public Use
  Company Number: NO-JNJFOC-20061003195

PATIENT
  Sex: Female

DRUGS (11)
  1. REMICADE [Suspect]
     Route: 042
  2. REMICADE [Suspect]
     Route: 042
  3. REMICADE [Suspect]
     Indication: OVARIAN CANCER
     Route: 042
  4. CORTISONE ACETATE [Concomitant]
     Route: 065
  5. OXIS TURBUHALER [Concomitant]
     Route: 065
  6. BONIVA [Concomitant]
     Route: 065
  7. CALCIGRAN FORTE [Concomitant]
     Route: 065
  8. SOLU-MEDROL [Concomitant]
     Route: 065
  9. ZANTAC [Concomitant]
     Route: 065
  10. FOSAMAX [Concomitant]
     Route: 065
  11. PREDNISOLONE [Concomitant]
     Route: 065

REACTIONS (1)
  - OVARIAN CANCER METASTATIC [None]
